FAERS Safety Report 14723167 (Version 1)
Quarter: 2018Q2

REPORT INFORMATION
  Report Type: Report from Study
  Country: None (occurrence: RO)
  Receive Date: 20180405
  Receipt Date: 20180405
  Transmission Date: 20180711
  Serious: Yes (Death, Life-Threatening, Hospitalization, Other)
  Sender: FDA-Public Use
  Company Number: RO-ABBVIE-18S-135-2309961-00

PATIENT
  Age: 47 Year
  Sex: Male

DRUGS (11)
  1. DIUREX [Concomitant]
     Active Substance: AMILORIDE HYDROCHLORIDE\HYDROCHLOROTHIAZIDE
     Indication: CARDIAC DISORDER
     Route: 065
  2. URSOFALK [Concomitant]
     Active Substance: URSODIOL
     Indication: HEPATIC CIRRHOSIS
     Route: 065
  3. RIBAVIRIN. [Suspect]
     Active Substance: RIBAVIRIN
     Indication: HEPATITIS C
  4. LEDIPASVIR/SOFOSBUVIR [Suspect]
     Active Substance: LEDIPASVIR\SOFOSBUVIR
     Indication: HEPATIC CIRRHOSIS
  5. HEPAMERZ [Concomitant]
     Active Substance: ORNITHINE ASPARTATE
     Indication: HEPATIC CIRRHOSIS
     Route: 065
  6. RIBAVIRIN. [Suspect]
     Active Substance: RIBAVIRIN
     Indication: HEPATIC CIRRHOSIS
     Dosage: 6 DF, QD
     Route: 048
     Dates: start: 20171208, end: 201802
  7. OLICARD [Concomitant]
     Active Substance: ISOSORBIDE MONONITRATE
     Indication: CARDIAC DISORDER
     Route: 065
  8. CARVEDILOL. [Concomitant]
     Active Substance: CARVEDILOL
     Indication: CARDIAC DISORDER
     Route: 065
  9. LEDIPASVIR/SOFOSBUVIR [Suspect]
     Active Substance: LEDIPASVIR\SOFOSBUVIR
     Indication: HEPATITIS C
     Dosage: 1 DF, QD
     Route: 048
     Dates: start: 20171208, end: 201802
  10. NORMIX [Concomitant]
     Active Substance: RIFAXIMIN
     Indication: GASTROINTESTINAL DISORDER
     Route: 065
  11. CONTROLOC [Concomitant]
     Active Substance: PANTOPRAZOLE SODIUM
     Indication: GASTROINTESTINAL DISORDER
     Route: 065

REACTIONS (14)
  - Hair disorder [Recovering/Resolving]
  - Haematemesis [Fatal]
  - Off label use [Recovered/Resolved]
  - Upper gastrointestinal haemorrhage [Recovered/Resolved]
  - Dehydration [Recovering/Resolving]
  - Disease progression [Fatal]
  - Cardio-respiratory arrest [Fatal]
  - Nail disorder [Recovering/Resolving]
  - Anaemia [Recovered/Resolved]
  - Hepatic encephalopathy [Recovering/Resolving]
  - Dyspnoea at rest [Fatal]
  - Ascites [Fatal]
  - Acute kidney injury [Recovering/Resolving]
  - Tremor [Recovering/Resolving]

NARRATIVE: CASE EVENT DATE: 20180203
